FAERS Safety Report 6593434-0 (Version None)
Quarter: 2010Q1

REPORT INFORMATION
  Report Type: 
  Country: None (occurrence: None)
  Receive Date: 20100222
  Receipt Date: 20090421
  Transmission Date: 20100710
  Serious: No
  Sender: FDA-Public Use
  Company Number: US-BRISTOL-MYERS SQUIBB COMPANY-14596274

PATIENT
  Age: 43 Year
  Sex: Female
  Weight: 60 kg

DRUGS (3)
  1. ORENCIA [Suspect]
     Indication: JUVENILE ARTHRITIS
     Dosage: RECEIVED 3 DOSES LAST DOSE ON 09APR09
     Dates: start: 20090101
  2. LEVOTHYROXINE SODIUM [Concomitant]
  3. CYMBALTA [Concomitant]

REACTIONS (12)
  - ARTHRALGIA [None]
  - COUGH [None]
  - DECREASED APPETITE [None]
  - DYSPHONIA [None]
  - FATIGUE [None]
  - MALAISE [None]
  - NAUSEA [None]
  - OROPHARYNGEAL PAIN [None]
  - PAIN [None]
  - SLEEP DISORDER [None]
  - WEIGHT INCREASED [None]
  - WHEEZING [None]
